FAERS Safety Report 13733095 (Version 3)
Quarter: 2017Q3

REPORT INFORMATION
  Report Type: Spontaneous
  Country: US (occurrence: US)
  Receive Date: 20170707
  Receipt Date: 20170823
  Transmission Date: 20171127
  Serious: No
  Sender: FDA-Public Use
  Company Number: US-GLAXOSMITHKLINE-US2017104911

PATIENT
  Sex: Male

DRUGS (4)
  1. FLOVENT DISKUS [Suspect]
     Active Substance: FLUTICASONE PROPIONATE
     Indication: COUGH
  2. VENTOLIN HFA [Concomitant]
     Active Substance: ALBUTEROL SULFATE
  3. FLOVENT DISKUS [Suspect]
     Active Substance: FLUTICASONE PROPIONATE
     Indication: PNEUMONITIS
     Dosage: 1 PUFF(S), BID
     Route: 055
     Dates: start: 20170622
  4. CEFUROXIME. [Concomitant]
     Active Substance: CEFUROXIME

REACTIONS (8)
  - Product use in unapproved indication [Recovered/Resolved]
  - Off label use [Recovered/Resolved]
  - Drug dose omission [Unknown]
  - Lung disorder [Recovering/Resolving]
  - Underdose [Unknown]
  - Product quality issue [Unknown]
  - Drug ineffective for unapproved indication [Recovering/Resolving]
  - Wrong technique in device usage process [Unknown]
